FAERS Safety Report 8264565-4 (Version None)
Quarter: 2012Q2

REPORT INFORMATION
  Report Type: 
  Country: None (occurrence: None)
  Receive Date: 20120406
  Receipt Date: 20120327
  Transmission Date: 20120825
  Serious: Yes (Hospitalization, Disabling, Other)
  Sender: FDA-Public Use
  Company Number: US-SANOFI-AVENTIS-2012SA021259

PATIENT
  Sex: Female

DRUGS (5)
  1. APIDRA [Suspect]
     Dosage: SLIDING SCALE THREE TIMES A DAY
     Route: 058
  2. LANTUS [Suspect]
     Dosage: DOSE:35 UNIT(S)
     Route: 058
  3. LANTUS [Suspect]
     Route: 058
     Dates: end: 20110101
  4. LANTUS [Suspect]
     Dosage: DOSE:42 UNIT(S)
     Route: 058
     Dates: start: 20110101
  5. SOLOSTAR [Suspect]

REACTIONS (5)
  - FATIGUE [None]
  - BLOOD GLUCOSE DECREASED [None]
  - ARRHYTHMIA [None]
  - INFECTION [None]
  - BLOOD GLUCOSE INCREASED [None]
